FAERS Safety Report 21346993 (Version 1)
Quarter: 2022Q3

REPORT INFORMATION
  Report Type: Spontaneous
  Country: US (occurrence: None)
  Receive Date: 20220916
  Receipt Date: 20220916
  Transmission Date: 20221027
  Serious: No
  Sender: FDA-Public Use
  Company Number: None

PATIENT
  Sex: Female

DRUGS (1)
  1. HUMIRA [Suspect]
     Active Substance: ADALIMUMAB
     Indication: Ankylosing spondylitis
     Dosage: 40MG EVERY 14 DAYS UNDER THE SKIN
     Route: 058
     Dates: start: 20220414, end: 20220915

REACTIONS (4)
  - Therapeutic product effect decreased [None]
  - Condition aggravated [None]
  - Burning sensation [None]
  - Pain in extremity [None]
